FAERS Safety Report 13688764 (Version 1)
Quarter: 2017Q2

REPORT INFORMATION
  Report Type: Spontaneous
  Country: CN (occurrence: CN)
  Receive Date: 20170626
  Receipt Date: 20170626
  Transmission Date: 20170830
  Serious: Yes (Disabling, Other)
  Sender: FDA-Public Use
  Company Number: CN-B.I. PHARMACEUTICALS,INC./RIDGEFIELD-2017-BI-035758

PATIENT
  Age: 35 Year
  Sex: Male

DRUGS (2)
  1. HARNAL [Suspect]
     Active Substance: TAMSULOSIN HYDROCHLORIDE
     Indication: LOWER URINARY TRACT SYMPTOMS
     Route: 048
  2. HARNAL [Suspect]
     Active Substance: TAMSULOSIN HYDROCHLORIDE
     Route: 048

REACTIONS (6)
  - Orthostatic hypotension [Recovering/Resolving]
  - Head injury [Unknown]
  - Haemorrhage [Unknown]
  - Off label use [Unknown]
  - Fall [Recovering/Resolving]
  - Fracture [Unknown]
